FAERS Safety Report 19069619 (Version 3)
Quarter: 2023Q2

REPORT INFORMATION
  Report Type: Spontaneous
  Country: US (occurrence: US)
  Receive Date: 20210329
  Receipt Date: 20230505
  Transmission Date: 20230721
  Serious: No
  Sender: FDA-Public Use
  Company Number: US-GILEAD-2021-0523127

PATIENT
  Sex: Male
  Weight: 81.633 kg

DRUGS (48)
  1. TRUVADA [Suspect]
     Active Substance: EMTRICITABINE\TENOFOVIR DISOPROXIL FUMARATE
     Indication: HIV infection
     Dosage: UNK
     Route: 048
     Dates: start: 2004
  2. TRUVADA [Suspect]
     Active Substance: EMTRICITABINE\TENOFOVIR DISOPROXIL FUMARATE
     Dosage: UNK
     Route: 048
     Dates: end: 2006
  3. TRUVADA [Suspect]
     Active Substance: EMTRICITABINE\TENOFOVIR DISOPROXIL FUMARATE
     Dosage: UNK
     Route: 048
     Dates: start: 2006, end: 2011
  4. ATRIPLA [Suspect]
     Active Substance: EFAVIRENZ\EMTRICITABINE\TENOFOVIR DISOPROXIL FUMARATE
     Indication: HIV infection
     Dosage: UNK
     Route: 048
     Dates: start: 2004
  5. ATRIPLA [Suspect]
     Active Substance: EFAVIRENZ\EMTRICITABINE\TENOFOVIR DISOPROXIL FUMARATE
     Dosage: UNK
     Route: 048
     Dates: start: 2006, end: 201312
  6. ATRIPLA [Suspect]
     Active Substance: EFAVIRENZ\EMTRICITABINE\TENOFOVIR DISOPROXIL FUMARATE
     Dosage: UNK
     Route: 048
     Dates: start: 20140214, end: 201603
  7. ATRIPLA [Suspect]
     Active Substance: EFAVIRENZ\EMTRICITABINE\TENOFOVIR DISOPROXIL FUMARATE
     Dosage: UNK
     Route: 048
     Dates: start: 20160307, end: 20160906
  8. ATRIPLA [Suspect]
     Active Substance: EFAVIRENZ\EMTRICITABINE\TENOFOVIR DISOPROXIL FUMARATE
     Dosage: UNK
     Route: 048
     Dates: start: 20160919, end: 20180222
  9. ATRIPLA [Suspect]
     Active Substance: EFAVIRENZ\EMTRICITABINE\TENOFOVIR DISOPROXIL FUMARATE
     Dosage: UNK
     Route: 048
     Dates: start: 2014, end: 201801
  10. COMPLERA [Suspect]
     Active Substance: EMTRICITABINE\RILPIVIRINE HYDROCHLORIDE\TENOFOVIR DISOPROXIL FUMARATE
     Indication: HIV infection
     Dosage: UNK
     Route: 048
     Dates: start: 20131212, end: 201402
  11. COMPLERA [Suspect]
     Active Substance: EMTRICITABINE\RILPIVIRINE HYDROCHLORIDE\TENOFOVIR DISOPROXIL FUMARATE
     Dosage: UNK
     Route: 048
     Dates: start: 2011, end: 2014
  12. BIKTARVY [Concomitant]
     Active Substance: BICTEGRAVIR SODIUM\EMTRICITABINE\TENOFOVIR ALAFENAMIDE FUMARATE
  13. GENVOYA [Concomitant]
     Active Substance: COBICISTAT\ELVITEGRAVIR\EMTRICITABINE\TENOFOVIR ALAFENAMIDE FUMARATE
  14. ACYCLOVIR [Concomitant]
     Active Substance: ACYCLOVIR
  15. AMOXICILLIN [Concomitant]
     Active Substance: AMOXICILLIN
  16. ATORVASTATIN [Concomitant]
     Active Substance: ATORVASTATIN
  17. AZITHROMYCIN [Concomitant]
     Active Substance: AZITHROMYCIN
  18. CEPHALEXIN [Concomitant]
     Active Substance: CEPHALEXIN
  19. CHLORHEXIDINE [Concomitant]
     Active Substance: CHLORHEXIDINE
  20. CIPROFLOXACIN [Concomitant]
     Active Substance: CIPROFLOXACIN
  21. CLINDAMYCIN [Concomitant]
     Active Substance: CLINDAMYCIN
  22. CLOPIDOGREL [Concomitant]
     Active Substance: CLOPIDOGREL BISULFATE
  23. CYCLOBENZAPRINE [Concomitant]
     Active Substance: CYCLOBENZAPRINE
  24. FLUZONE [Concomitant]
     Active Substance: INFLUENZA A VIRUS A/CALIFORNIA/7/2009 X-179A (H1N1) ANTIGEN (FORMALDEHYDE INACTIVATED)\INFLUENZA A V
  25. HYDROCODONE [Concomitant]
     Active Substance: HYDROCODONE
  26. IBUPROFEN [Concomitant]
     Active Substance: IBUPROFEN
  27. ISOSORBIDE [Concomitant]
     Active Substance: ISOSORBIDE
  28. MEFLOQUINE [Concomitant]
     Active Substance: MEFLOQUINE
  29. MELOXICAM [Concomitant]
     Active Substance: MELOXICAM
  30. METOPROLOL [Concomitant]
     Active Substance: METOPROLOL
  31. MUPIROCIN [Concomitant]
     Active Substance: MUPIROCIN
  32. NAPROXEN [Concomitant]
     Active Substance: NAPROXEN
  33. NITROGLYCERIN [Concomitant]
     Active Substance: NITROGLYCERIN
  34. NITROSTAT [Concomitant]
     Active Substance: NITROGLYCERIN
  35. ONDANSETRON [Concomitant]
     Active Substance: ONDANSETRON
  36. OXYCODONE [Concomitant]
     Active Substance: OXYCODONE
  37. PNEUMOVAX 23 [Concomitant]
     Active Substance: PNEUMOCOCCAL VACCINE, POLYVALENT 23
  38. PRAVASTATIN [Concomitant]
     Active Substance: PRAVASTATIN
  39. PREVNAR [Concomitant]
     Active Substance: PNEUMOCOCCAL 7-VALENT CONJUGATE VACCINE (DIPHTHERIA CRM197 PROTEIN)
  40. ROSUVASTATIN [Concomitant]
     Active Substance: ROSUVASTATIN
  41. SULFAMETHOXAZOLE\TRIMETHOPRIM [Concomitant]
     Active Substance: SULFAMETHOXAZOLE\TRIMETHOPRIM
  42. SUPREP BOWEL PREP [Concomitant]
     Active Substance: MAGNESIUM SULFATE\POTASSIUM SULFATE\SODIUM SULFATE
  43. TAMSULOSIN [Concomitant]
     Active Substance: TAMSULOSIN
  44. TIZANIDINE [Concomitant]
     Active Substance: TIZANIDINE
  45. TRIAMCINOLONE [Concomitant]
     Active Substance: TRIAMCINOLONE
  46. TYPHIM [Concomitant]
  47. VALACYCLOVIR [Concomitant]
     Active Substance: VALACYCLOVIR HYDROCHLORIDE
  48. VIMOVO [Concomitant]
     Active Substance: ESOMEPRAZOLE MAGNESIUM\NAPROXEN

REACTIONS (8)
  - Osteopenia [Not Recovered/Not Resolved]
  - Pain [Not Recovered/Not Resolved]
  - Emotional distress [Not Recovered/Not Resolved]
  - Anxiety [Not Recovered/Not Resolved]
  - Anhedonia [Not Recovered/Not Resolved]
  - Bone pain [Unknown]
  - Arthralgia [Unknown]
  - Mobility decreased [Not Recovered/Not Resolved]

NARRATIVE: CASE EVENT DATE: 20160101
